FAERS Safety Report 25720937 (Version 1)
Quarter: 2025Q3

REPORT INFORMATION
  Report Type: Spontaneous
  Country: GB (occurrence: GB)
  Receive Date: 20250825
  Receipt Date: 20250825
  Transmission Date: 20251020
  Serious: Yes (Other)
  Sender: REGENERON
  Company Number: GB-SA-2025SA251667

PATIENT
  Age: 75 Year
  Sex: Female

DRUGS (1)
  1. PRALUENT [Suspect]
     Active Substance: ALIROCUMAB
     Indication: Type IIa hyperlipidaemia
     Dosage: 150 MG, QOW (SOLUTION FOR INJECTION)
     Route: 058

REACTIONS (3)
  - Diverticulitis [Unknown]
  - Pyrexia [Unknown]
  - Product dose omission in error [Unknown]
